FAERS Safety Report 7800285-5 (Version None)
Quarter: 2011Q4

REPORT INFORMATION
  Report Type: 
  Country: None (occurrence: None)
  Receive Date: 20111006
  Receipt Date: 20110921
  Transmission Date: 20120403
  Serious: Yes (Hospitalization)
  Sender: FDA-Public Use
  Company Number: IN-GLAXOSMITHKLINE-B0751108A

PATIENT
  Sex: Female
  Weight: 40.2 kg

DRUGS (3)
  1. LAPATINIB [Suspect]
     Indication: GASTRIC CANCER
     Dosage: 1250MG PER DAY
     Route: 048
     Dates: start: 20110808
  2. CAPECITABINE [Suspect]
     Indication: GASTRIC CANCER
     Dosage: 2250MG CYCLIC
     Route: 048
     Dates: start: 20110808
  3. OXALIPLATIN [Suspect]
     Indication: GASTRIC CANCER
     Dosage: 170MG CYCLIC
     Route: 042
     Dates: start: 20110808

REACTIONS (1)
  - ANAEMIA [None]
